FAERS Safety Report 8401157-8 (Version None)
Quarter: 2012Q2

REPORT INFORMATION
  Report Type: 
  Country: None (occurrence: None)
  Receive Date: 20120530
  Receipt Date: 20120530
  Transmission Date: 20120825
  Serious: Yes (Other)
  Sender: FDA-Public Use
  Company Number: None

PATIENT
  Age: 48 Year
  Sex: Female
  Weight: 48.5349 kg

DRUGS (2)
  1. AMOXICILLIN [Suspect]
     Indication: ORAL INFECTION
     Dosage: 3X DAILY PO
     Route: 048
     Dates: start: 20120525, end: 20120526
  2. AMOXICILLIN [Suspect]
     Indication: OROPHARYNGEAL PAIN
     Dosage: 3X DAILY PO
     Route: 048
     Dates: start: 20120525, end: 20120526

REACTIONS (4)
  - POOR QUALITY SLEEP [None]
  - HEADACHE [None]
  - DIZZINESS [None]
  - NAUSEA [None]
